FAERS Safety Report 21570688 (Version 1)
Quarter: 2022Q4

REPORT INFORMATION
  Report Type: Other
  Country: CA (occurrence: CA)
  Receive Date: 20221109
  Receipt Date: 20221109
  Transmission Date: 20230112
  Serious: Yes (Other)
  Sender: FDA-Public Use
  Company Number: CA-APOTEX-2022AP014972

PATIENT
  Age: 76 Year
  Sex: Male

DRUGS (1)
  1. TIMOLOL [Suspect]
     Active Substance: TIMOLOL
     Indication: Angle closure glaucoma
     Dosage: 1 GTT DROPS, QD
     Route: 047

REACTIONS (7)
  - Facial paralysis [Unknown]
  - Neuralgia [Unknown]
  - Productive cough [Unknown]
  - Sleep disorder [Unknown]
  - Myalgia [Unknown]
  - Headache [Unknown]
  - Dyspnoea [Unknown]
